FAERS Safety Report 7910083-X (Version None)
Quarter: 2011Q4

REPORT INFORMATION
  Report Type: 
  Country: None (occurrence: None)
  Receive Date: 20111111
  Receipt Date: 20111107
  Transmission Date: 20120403
  Serious: Yes (Hospitalization, Other)
  Sender: FDA-Public Use
  Company Number: US-ABBOTT-11P-163-0872232-00

PATIENT
  Sex: Female
  Weight: 72.64 kg

DRUGS (5)
  1. HUMIRA [Suspect]
     Indication: RHEUMATOID ARTHRITIS
     Dates: end: 20060101
  2. UNKNOWN MED [Concomitant]
     Indication: HYPERTENSION
  3. CALCIUM [Concomitant]
     Indication: MINERAL SUPPLEMENTATION
  4. DILANTIN [Suspect]
     Indication: PRODUCT USED FOR UNKNOWN INDICATION
  5. POTASSIUM [Concomitant]
     Indication: MINERAL SUPPLEMENTATION

REACTIONS (13)
  - BRAIN ABSCESS [None]
  - SINUSITIS [None]
  - CONFUSIONAL STATE [None]
  - WEIGHT INCREASED [None]
  - IMPAIRED SELF-CARE [None]
  - APALLIC SYNDROME [None]
  - UNEVALUABLE EVENT [None]
  - HEADACHE [None]
  - AMNESIA [None]
  - APHASIA [None]
  - ACTIVITIES OF DAILY LIVING IMPAIRED [None]
  - ABNORMAL BEHAVIOUR [None]
  - SPEECH DISORDER [None]
